FAERS Safety Report 22335834 (Version 2)
Quarter: 2023Q2

REPORT INFORMATION
  Report Type: Spontaneous
  Country: US (occurrence: US)
  Receive Date: 20230518
  Receipt Date: 20230529
  Transmission Date: 20230722
  Serious: Yes (Hospitalization, Other)
  Sender: FDA-Public Use
  Company Number: US-TAKEDA-2023TUS046104

PATIENT
  Sex: Female
  Weight: 59 kg

DRUGS (6)
  1. ADDERALL XR [Suspect]
     Active Substance: AMPHETAMINE ASPARTATE\AMPHETAMINE SULFATE\DEXTROAMPHETAMINE SACCHARATE\DEXTROAMPHETAMINE SULFATE
     Indication: Attention deficit hyperactivity disorder
     Dosage: 10 MILLIGRAM, QD
     Route: 065
     Dates: start: 202207
  2. ADDERALL XR [Suspect]
     Active Substance: AMPHETAMINE ASPARTATE\AMPHETAMINE SULFATE\DEXTROAMPHETAMINE SACCHARATE\DEXTROAMPHETAMINE SULFATE
     Dosage: 15 MILLIGRAM, QD
     Route: 065
     Dates: start: 20220726
  3. DEXTROAMPHET SACCHARAT, AMPHET ASPARTATE, DEXTROAMPHET SULFATE AND AMP [Suspect]
     Active Substance: AMPHETAMINE ASPARTATE\AMPHETAMINE ASPARTATE MONOHYDRATE\AMPHETAMINE SULFATE\DEXTROAMPHETAMINE SACCHA
     Indication: Attention deficit hyperactivity disorder
     Dosage: UNK
     Route: 065
  4. VYVANSE [Suspect]
     Active Substance: LISDEXAMFETAMINE DIMESYLATE
     Indication: Attention deficit hyperactivity disorder
     Dosage: UNK
     Route: 065
  5. PROVIGIL [Suspect]
     Active Substance: MODAFINIL
     Indication: Narcolepsy
     Dosage: UNK
     Route: 065
  6. BENADRYL [Concomitant]
     Active Substance: DIPHENHYDRAMINE HYDROCHLORIDE
     Indication: Pruritus

REACTIONS (33)
  - Loss of consciousness [Unknown]
  - Paralysis [Unknown]
  - Visual impairment [Unknown]
  - Food craving [Unknown]
  - Brain fog [Unknown]
  - Weight increased [Unknown]
  - Bedridden [Unknown]
  - Memory impairment [Unknown]
  - Scratch [Unknown]
  - Erythema [Unknown]
  - Head injury [Unknown]
  - Concussion [Unknown]
  - Spinal pain [Unknown]
  - Hyperphagia [Unknown]
  - Increased appetite [Unknown]
  - Disturbance in attention [Unknown]
  - Feeling abnormal [Unknown]
  - Coordination abnormal [Unknown]
  - Crying [Unknown]
  - Pain [Unknown]
  - Loss of employment [Unknown]
  - Drug ineffective [Unknown]
  - Product availability issue [Unknown]
  - Asthenia [Unknown]
  - Pruritus [Unknown]
  - Mydriasis [Unknown]
  - Fatigue [Unknown]
  - Dizziness [Unknown]
  - Depression [Unknown]
  - Somnolence [Unknown]
  - Insomnia [Unknown]
  - Urticaria [Unknown]
  - Incorrect dose administered [Unknown]
